FAERS Safety Report 4625489-4 (Version None)
Quarter: 2005Q2

REPORT INFORMATION
  Report Type: 
  Country: None (occurrence: None)
  Receive Date: 20050401
  Receipt Date: 20050311
  Transmission Date: 20051028
  Serious: Yes (Other)
  Sender: FDA-Public Use
  Company Number: PHEH2005US03036

PATIENT
  Age: 56 Year
  Sex: Male

DRUGS (9)
  1. ELIDEL [Suspect]
     Indication: ECZEMA
     Dosage: UNK, PRN
     Route: 061
     Dates: start: 20020821
  2. ELIDEL [Suspect]
     Dosage: UNK, PRN
     Dates: start: 20030617
  3. ELIDEL [Suspect]
     Dosage: UNK, PRN
     Dates: start: 20031217
  4. ELIDEL [Suspect]
     Dosage: UNK, PRN
     Dates: start: 20040609
  5. ELIDEL [Suspect]
     Dosage: UNK, PRN
     Dates: start: 20030617
  6. ELIDEL [Suspect]
     Dosage: UNK, PRN
     Dates: start: 20031217
  7. ELIDEL [Suspect]
     Dosage: UNK, PRN
     Dates: start: 20040609
  8. NIZORAL [Concomitant]
  9. LOPROX [Concomitant]

REACTIONS (4)
  - DYSPLASIA [None]
  - PAPILLOMA [None]
  - PAPILLOMA EXCISION [None]
  - SOLAR ELASTOSIS [None]
